FAERS Safety Report 19474261 (Version 2)
Quarter: 2021Q3

REPORT INFORMATION
  Report Type: Spontaneous
  Country: CN (occurrence: CN)
  Receive Date: 20210630
  Receipt Date: 20210707
  Transmission Date: 20211014
  Serious: Yes (Other)
  Sender: FDA-Public Use
  Company Number: CN-BEH-2021133267

PATIENT
  Age: 83 Year
  Sex: Female
  Weight: 45 kg

DRUGS (5)
  1. ALBURX [Suspect]
     Active Substance: ALBUMIN HUMAN
     Indication: ARRHYTHMIA
     Dosage: 10 GRAM, QD
     Route: 041
     Dates: start: 20210602, end: 20210608
  2. ALBURX [Suspect]
     Active Substance: ALBUMIN HUMAN
     Indication: ACUTE CORONARY SYNDROME
  3. ALBURX [Suspect]
     Active Substance: ALBUMIN HUMAN
     Indication: PNEUMONIA
  4. ALBURX [Suspect]
     Active Substance: ALBUMIN HUMAN
     Indication: HYPOPROTEINAEMIA
  5. ALBURX [Suspect]
     Active Substance: ALBUMIN HUMAN
     Indication: PYREXIA

REACTIONS (5)
  - Pyrexia [Recovered/Resolved]
  - Blood pressure increased [Recovered/Resolved]
  - Chills [Recovered/Resolved]
  - Heart rate increased [Recovered/Resolved]
  - Respiratory rate increased [Recovered/Resolved]

NARRATIVE: CASE EVENT DATE: 20210607
